FAERS Safety Report 8487793-1 (Version None)
Quarter: 2012Q3

REPORT INFORMATION
  Report Type: 
  Country: None (occurrence: None)
  Receive Date: 20120705
  Receipt Date: 20120629
  Transmission Date: 20120928
  Serious: Yes (Hospitalization)
  Sender: FDA-Public Use
  Company Number: CO-PFIZER INC-2012118954

PATIENT
  Age: 56 Year
  Sex: Female

DRUGS (2)
  1. WARFARIN [Concomitant]
     Indication: DIABETES MELLITUS
  2. NORVASC [Suspect]
     Indication: HYPERTENSION
     Dosage: 10 MG, UNK
     Dates: start: 20110101

REACTIONS (2)
  - HYPERTENSION [None]
  - CEREBRAL ISCHAEMIA [None]
